FAERS Safety Report 17960028 (Version 7)
Quarter: 2021Q2

REPORT INFORMATION
  Report Type: Report from Study
  Country: CO (occurrence: CO)
  Receive Date: 20200629
  Receipt Date: 20210421
  Transmission Date: 20210717
  Serious: Yes (Life-Threatening, Hospitalization)
  Sender: FDA-Public Use
  Company Number: CO-INCYTE CORPORATION-2020IN005845

PATIENT

DRUGS (2)
  1. JAKAVI [Suspect]
     Active Substance: RUXOLITINIB
     Dosage: 20 MG, Q12H
     Route: 048
  2. JAKAVI [Suspect]
     Active Substance: RUXOLITINIB
     Indication: MYELOFIBROSIS
     Dosage: 40 MG, QD
     Route: 048

REACTIONS (6)
  - Mood altered [Unknown]
  - Haemoglobin decreased [Unknown]
  - Fear [Unknown]
  - Inappropriate schedule of product administration [Unknown]
  - Platelet count decreased [Recovering/Resolving]
  - Product dose omission issue [Unknown]
